FAERS Safety Report 8340991-X (Version None)
Quarter: 2012Q2

REPORT INFORMATION
  Report Type: 
  Country: None (occurrence: None)
  Receive Date: 20120507
  Receipt Date: 20120427
  Transmission Date: 20120825
  Serious: Yes (Hospitalization, Other)
  Sender: FDA-Public Use
  Company Number: US-VERTEX PHARMACEUTICALS INC.-AE-2012-004914

PATIENT
  Age: 55 Year
  Sex: Female

DRUGS (6)
  1. INCIVEK [Suspect]
     Indication: HEPATITIS C
     Route: 048
     Dates: start: 20120207, end: 20120409
  2. PEGASYS [Concomitant]
     Indication: HEPATITIS C
     Dates: start: 20120207
  3. RIBAVIRIN [Concomitant]
     Indication: HEPATITIS C
     Dates: start: 20120207, end: 20120409
  4. LEVOTHYROXINE SODIUM [Concomitant]
  5. ALBUTEROL [Concomitant]
  6. ZOLOFT [Concomitant]

REACTIONS (3)
  - CONSTIPATION [None]
  - GASTROINTESTINAL ULCER HAEMORRHAGE [None]
  - DEHYDRATION [None]
